FAERS Safety Report 19310294 (Version 1)
Quarter: 2021Q2

REPORT INFORMATION
  Report Type: Spontaneous
  Country: US (occurrence: US)
  Receive Date: 20210526
  Receipt Date: 20210526
  Transmission Date: 20210717
  Serious: No
  Sender: FDA-Public Use
  Company Number: US-TAKEDA-2021TUS031816

PATIENT
  Sex: Female
  Weight: 58 kg

DRUGS (5)
  1. ENTYVIO [Suspect]
     Active Substance: VEDOLIZUMAB
     Indication: CROHN^S DISEASE
     Dosage: 300 MILLIGRAM
     Route: 042
  2. METAXALONE. [Concomitant]
     Active Substance: METAXALONE
     Indication: CONSTIPATION
     Dosage: UNK
  3. MESALAMINE. [Concomitant]
     Active Substance: MESALAMINE
     Dosage: 1.2 GRAM, QD
  4. TRETIN [TRETINOIN] [Concomitant]
     Indication: ACNE CYSTIC
     Dosage: UNK
  5. MODERNA COVID?19 VACCINE [Suspect]
     Active Substance: CX-024414
     Indication: COVID-19 IMMUNISATION
     Route: 065

REACTIONS (8)
  - Dyspnoea [Recovered/Resolved]
  - Fatigue [Recovered/Resolved]
  - Throat tightness [Unknown]
  - Aphthous ulcer [Not Recovered/Not Resolved]
  - Headache [Recovered/Resolved]
  - Chest discomfort [Unknown]
  - Infusion site rash [Not Recovered/Not Resolved]
  - Oropharyngeal pain [Recovered/Resolved]
